FAERS Safety Report 13615082 (Version 1)
Quarter: 2017Q2

REPORT INFORMATION
  Report Type: Report from Study
  Country: US (occurrence: US)
  Receive Date: 20170606
  Receipt Date: 20170606
  Transmission Date: 20170830
  Serious: Yes (Life-Threatening)
  Sender: FDA-Public Use
  Company Number: US-BION-006363

PATIENT
  Age: 54 Year
  Sex: Female

DRUGS (4)
  1. HYDROXYZINE [Suspect]
     Active Substance: HYDROXYZINE HYDROCHLORIDE
  2. DOXEPIN [Suspect]
     Active Substance: DOXEPIN
  3. LOPERAMIDE HYDROCHLORIDE. [Suspect]
     Active Substance: LOPERAMIDE HYDROCHLORIDE
  4. CARISOPRODOL. [Suspect]
     Active Substance: CARISOPRODOL

REACTIONS (4)
  - Coma [Unknown]
  - Lethargy [Unknown]
  - Suicide attempt [Unknown]
  - Tachycardia [Unknown]
